FAERS Safety Report 14120970 (Version 2)
Quarter: 2017Q4

REPORT INFORMATION
  Report Type: Spontaneous
  Country: ES (occurrence: ES)
  Receive Date: 20171024
  Receipt Date: 20171117
  Transmission Date: 20180321
  Serious: Yes (Other)
  Sender: FDA-Public Use
  Company Number: ES-JNJFOC-20171018012

PATIENT
  Age: 38 Year
  Sex: Female
  Weight: 47 kg

DRUGS (9)
  1. PREZISTA [Suspect]
     Active Substance: DARUNAVIR ETHANOLATE
     Indication: ANTIVIRAL TREATMENT
     Route: 048
     Dates: end: 20170808
  2. REZOLSTA [Suspect]
     Active Substance: COBICISTAT\DARUNAVIR ETHANOLATE
     Indication: ANTIVIRAL TREATMENT
     Route: 048
     Dates: start: 20170808
  3. TRUVADA [Suspect]
     Active Substance: EMTRICITABINE\TENOFOVIR DISOPROXIL FUMARATE
     Indication: ANTIVIRAL TREATMENT
     Route: 065
  4. METHADONE [Concomitant]
     Active Substance: METHADONE HYDROCHLORIDE
     Route: 065
  5. PREZISTA [Suspect]
     Active Substance: DARUNAVIR ETHANOLATE
     Indication: ANTIVIRAL TREATMENT
     Route: 048
     Dates: start: 20170918
  6. QUETIAPINE. [Concomitant]
     Active Substance: QUETIAPINE
     Route: 065
  7. RIVOTRIL [Concomitant]
     Active Substance: CLONAZEPAM
     Route: 065
  8. NORVIR [Suspect]
     Active Substance: RITONAVIR
     Indication: ANTIVIRAL TREATMENT
     Route: 065
     Dates: end: 20170808
  9. NORVIR [Suspect]
     Active Substance: RITONAVIR
     Indication: ANTIVIRAL TREATMENT
     Route: 065
     Dates: start: 20170918

REACTIONS (8)
  - Tinnitus [Recovered/Resolved]
  - Hypotension [Recovered/Resolved]
  - Peripheral swelling [Recovered/Resolved]
  - Asthenia [Recovered/Resolved]
  - Dizziness [Recovered/Resolved]
  - Bundle branch block right [Unknown]
  - Paraesthesia [Recovered/Resolved]
  - Electrocardiogram repolarisation abnormality [Unknown]

NARRATIVE: CASE EVENT DATE: 20170806
